FAERS Safety Report 8207508-1 (Version None)
Quarter: 2012Q1

REPORT INFORMATION
  Report Type: 
  Country: None (occurrence: None)
  Receive Date: 20120313
  Receipt Date: 20120313
  Transmission Date: 20120608
  Serious: No
  Sender: FDA-Public Use
  Company Number: None

PATIENT
  Age: 29 Year
  Sex: Female

DRUGS (1)
  1. LUPRON DEPOT [Suspect]
     Indication: ENDOMETRIOSIS
     Dosage: 11.25 MG 9.3 MO. IM
     Route: 030
     Dates: start: 20111201

REACTIONS (3)
  - OROPHARYNGEAL PAIN [None]
  - MIGRAINE [None]
  - ARTHRALGIA [None]
